FAERS Safety Report 7913116-X (Version None)
Quarter: 2011Q4

REPORT INFORMATION
  Report Type: 
  Country: None (occurrence: None)
  Receive Date: 20111114
  Receipt Date: 20111108
  Transmission Date: 20120403
  Serious: No
  Sender: FDA-Public Use
  Company Number: US-BAYER-2011-108961

PATIENT
  Age: 57 Year
  Sex: Male

DRUGS (2)
  1. AVELOX [Suspect]
     Indication: PNEUMONIA
     Dosage: 400 MG, QD
     Route: 048
     Dates: start: 20111011, end: 20111024
  2. ZANEX [Concomitant]
     Dosage: 1 MG, QD

REACTIONS (7)
  - ARTHRALGIA [None]
  - MYALGIA [None]
  - FORMICATION [None]
  - ARTHROPATHY [None]
  - MUSCLE CONTRACTIONS INVOLUNTARY [None]
  - ASTHENIA [None]
  - BURNING SENSATION [None]
